FAERS Safety Report 14389384 (Version 2)
Quarter: 2018Q2

REPORT INFORMATION
  Report Type: Spontaneous
  Country: US (occurrence: US)
  Receive Date: 20180115
  Receipt Date: 20180615
  Transmission Date: 20180711
  Serious: Yes (Other)
  Sender: FDA-Public Use
  Company Number: US-SA-2017SA242502

PATIENT
  Age: 67 Year
  Sex: Female
  Weight: 79.37 kg

DRUGS (8)
  1. INSULIN [Concomitant]
     Active Substance: INSULIN NOS
     Dosage: UNK
     Dates: start: 2002
  2. DIOVAN [Concomitant]
     Active Substance: VALSARTAN
     Dosage: UNK
     Dates: start: 1999
  3. PROTONIX [OMEPRAZOLE] [Concomitant]
     Dosage: UNK
     Dates: start: 1997
  4. TAXOTERE [Suspect]
     Active Substance: DOCETAXEL
     Indication: BREAST CANCER FEMALE
     Dosage: 145 MG, Q3W
     Route: 042
     Dates: start: 20100211, end: 20100211
  5. INSULIN [Concomitant]
     Active Substance: INSULIN NOS
  6. TAXOTERE [Suspect]
     Active Substance: DOCETAXEL
     Dosage: 145 MG, Q3W
     Route: 042
     Dates: start: 20100415, end: 20100415
  7. NEOSAR [Concomitant]
     Active Substance: CYCLOPHOSPHAMIDE
  8. ZIAC [BISOPROLOL FUMARATE;HYDROCHLOROTHIAZIDE] [Concomitant]
     Dosage: UNK
     Dates: start: 1999

REACTIONS (2)
  - Alopecia [Recovering/Resolving]
  - Psychological trauma [Unknown]

NARRATIVE: CASE EVENT DATE: 20101016
